FAERS Safety Report 6972287-2 (Version None)
Quarter: 2010Q3

REPORT INFORMATION
  Report Type: 
  Country: None (occurrence: None)
  Receive Date: 20100909
  Receipt Date: 20100907
  Transmission Date: 20110219
  Serious: Yes (Death)
  Sender: FDA-Public Use
  Company Number: FR-JNJFOC-20100901723

PATIENT
  Age: 52 Year
  Sex: Male

DRUGS (3)
  1. RISPERDAL [Suspect]
     Indication: MENTAL DISORDER
     Route: 065
  2. LOXAPAC [Concomitant]
     Indication: MENTAL DISORDER
     Route: 065
  3. DEPAKOTE [Concomitant]
     Indication: MENTAL DISORDER
     Route: 065

REACTIONS (1)
  - MYOCARDIAL INFARCTION [None]
